FAERS Safety Report 9647678 (Version 1)
Quarter: 2013Q4

REPORT INFORMATION
  Report Type: Report from Study
  Country: AR (occurrence: AR)
  Receive Date: 20131028
  Receipt Date: 20131028
  Transmission Date: 20140711
  Serious: Yes (Other)
  Sender: FDA-Public Use
  Company Number: AR-ROCHE-1293719

PATIENT
  Sex: Female

DRUGS (3)
  1. RANIBIZUMAB [Suspect]
     Indication: CORNEAL DISORDER
     Route: 050
     Dates: start: 2011
  2. RANIBIZUMAB [Suspect]
     Route: 050
     Dates: start: 2011
  3. RANIBIZUMAB [Suspect]
     Route: 050
     Dates: start: 201212

REACTIONS (3)
  - Cataract [Not Recovered/Not Resolved]
  - Visual acuity reduced [Unknown]
  - Drug ineffective [Unknown]
